FAERS Safety Report 12348936 (Version 3)
Quarter: 2016Q4

REPORT INFORMATION
  Report Type: Spontaneous
  Country: US (occurrence: US)
  Receive Date: 20160509
  Receipt Date: 20161209
  Transmission Date: 20170207
  Serious: Yes (Other)
  Sender: FDA-Public Use
  Company Number: US-VALIDUS PHARMACEUTICALS LLC-US-2016VAL000956

PATIENT

DRUGS (25)
  1. FLOLAN [Suspect]
     Active Substance: EPOPROSTENOL SODIUM
     Dosage: 52.1 NG/KG/MIN, CO
  2. FLOLAN [Suspect]
     Active Substance: EPOPROSTENOL SODIUM
     Dosage: 56 NG/KG/MIN, CO
  3. FLOLAN [Suspect]
     Active Substance: EPOPROSTENOL SODIUM
     Dosage: 56. NG/KG/MIN, CO, CONCENTRATION 90000 NG/ML
     Route: 042
     Dates: start: 20060725
  4. FLOLAN [Suspect]
     Active Substance: EPOPROSTENOL SODIUM
     Dosage: 56.9 NG/KG/MIN CO
     Dates: start: 20060725
  5. FLOLAN [Suspect]
     Active Substance: EPOPROSTENOL SODIUM
     Dosage: 64 NG/KG/MIN, CO
     Dates: start: 20060725
  6. ALBUTEROL                          /00139502/ [Suspect]
     Active Substance: ALBUTEROL
     Indication: PRODUCT USED FOR UNKNOWN INDICATION
     Dosage: UNK
  7. LETAIRIS [Suspect]
     Active Substance: AMBRISENTAN
     Indication: PRODUCT USED FOR UNKNOWN INDICATION
     Dosage: UNK
     Dates: start: 20160822
  8. FLOLAN [Suspect]
     Active Substance: EPOPROSTENOL SODIUM
     Dosage: 49.7 NG/KG/MIN, CO
  9. FLOLAN [Suspect]
     Active Substance: EPOPROSTENOL SODIUM
     Dosage: 52.7 NG/KG/MIN, CO,1.5 MG/ML,CONCENTRATION 75,500 NG/ML
  10. FLOLAN [Suspect]
     Active Substance: EPOPROSTENOL SODIUM
     Dosage: 56.2 NG/KG/MIN CO
  11. FLOLAN [Suspect]
     Active Substance: EPOPROSTENOL SODIUM
     Dosage: 56.9 NG/KG/MIN
     Route: 042
     Dates: start: 20060725
  12. FLOLAN [Suspect]
     Active Substance: EPOPROSTENOL SODIUM
     Dosage: 64 NG/KG/MIN (CONCENTRATION 90,000 NG/ML, PUMP RATE 81 ML/DAY, VIAL STRENGTH 1.5 MG), CO
  13. FLOLAN [Suspect]
     Active Substance: EPOPROSTENOL SODIUM
     Dosage: UNK, CO
  14. LASIX [Suspect]
     Active Substance: FUROSEMIDE
     Dosage: 20 MG, QD
  15. FLOLAN [Suspect]
     Active Substance: EPOPROSTENOL SODIUM
     Indication: PULMONARY ARTERIAL HYPERTENSION
     Dosage: 49.7 NG/KG/MIN, CO
     Route: 042
     Dates: start: 20060725
  16. FLOLAN [Suspect]
     Active Substance: EPOPROSTENOL SODIUM
     Dosage: 22 NG/KG/MIN CO
     Dates: start: 20060725
  17. ADCIRCA [Suspect]
     Active Substance: TADALAFIL
     Dosage: 30 MG, QD
     Dates: end: 2016
  18. LASIX [Suspect]
     Active Substance: FUROSEMIDE
     Indication: OEDEMA
     Dosage: UNK
  19. FLOLAN [Suspect]
     Active Substance: EPOPROSTENOL SODIUM
     Indication: PULMONARY ARTERIAL HYPERTENSION
     Dosage: UNK,CO
     Dates: start: 20060725
  20. FLOLAN [Suspect]
     Active Substance: EPOPROSTENOL SODIUM
     Dosage: UNK
  21. FLOLAN [Suspect]
     Active Substance: EPOPROSTENOL SODIUM
     Dosage: 56.9 NG/KG/MIN, CONTINUOUS
     Route: 042
  22. FLOLAN [Suspect]
     Active Substance: EPOPROSTENOL SODIUM
     Dosage: UNK, CO
     Route: 042
  23. FLOLAN [Suspect]
     Active Substance: EPOPROSTENOL SODIUM
     Dosage: 64 NG/KG/MIN, CO
     Route: 042
  24. ADCIRCA [Suspect]
     Active Substance: TADALAFIL
     Indication: PRODUCT USED FOR UNKNOWN INDICATION
     Dosage: 40 MG, QD
     Dates: start: 20160801
  25. FLOLAN [Suspect]
     Active Substance: EPOPROSTENOL SODIUM
     Dosage: 56.9 NG/KG/MIN, CONTINUOUS
     Route: 042

REACTIONS (58)
  - Nausea [Unknown]
  - Fall [Recovered/Resolved]
  - Pain in extremity [Unknown]
  - Confusional state [Unknown]
  - Incorrect dose administered [Unknown]
  - Device dislocation [Unknown]
  - Vomiting [Unknown]
  - Ejection fraction abnormal [Unknown]
  - Catheter site haemorrhage [Unknown]
  - Pulmonary arterial pressure increased [Unknown]
  - Bronchitis [Unknown]
  - Asthenia [Unknown]
  - Headache [Unknown]
  - Oxygen saturation decreased [Unknown]
  - Neuropathy peripheral [Recovering/Resolving]
  - Angina pectoris [Unknown]
  - Weight decreased [Not Recovered/Not Resolved]
  - Heart rate increased [Unknown]
  - Muscle spasms [Unknown]
  - Haemoptysis [Unknown]
  - Skin discolouration [Unknown]
  - Back pain [Unknown]
  - Device failure [Unknown]
  - Emergency care [Unknown]
  - Drug ineffective [Unknown]
  - Abnormal behaviour [Unknown]
  - Amnesia [Unknown]
  - Visual impairment [Unknown]
  - Joint crepitation [Not Recovered/Not Resolved]
  - Heart rate decreased [Unknown]
  - Blood pressure abnormal [Unknown]
  - Echocardiogram abnormal [Unknown]
  - Carbon dioxide abnormal [Unknown]
  - Feeling abnormal [Unknown]
  - Hypoaesthesia [Not Recovered/Not Resolved]
  - Pain in jaw [Unknown]
  - Anxiety [Unknown]
  - Hypotension [Recovering/Resolving]
  - Dental prosthesis placement [Unknown]
  - Oedema [Unknown]
  - Contusion [Unknown]
  - Sinus headache [Unknown]
  - Migraine [Unknown]
  - Hypoacusis [Unknown]
  - Thyroid mass [Not Recovered/Not Resolved]
  - Depression [Unknown]
  - Condition aggravated [Unknown]
  - Mental status changes [Unknown]
  - Gastrooesophageal reflux disease [Unknown]
  - Alopecia [Unknown]
  - Visual impairment [Unknown]
  - Blood magnesium decreased [Unknown]
  - Diarrhoea [Unknown]
  - Pain [Unknown]
  - Adrenal disorder [Unknown]
  - Dyspnoea [Unknown]
  - Vision blurred [Unknown]
  - Fatigue [Recovered/Resolved]

NARRATIVE: CASE EVENT DATE: 2016
